FAERS Safety Report 10050208 (Version 3)
Quarter: 2014Q2

REPORT INFORMATION
  Report Type: Spontaneous
  Country: ES (occurrence: ES)
  Receive Date: 20140401
  Receipt Date: 20140522
  Transmission Date: 20141212
  Serious: Yes (Other)
  Sender: FDA-Public Use
  Company Number: ES-PFIZER INC-2014087876

PATIENT
  Sex: Female

DRUGS (4)
  1. LYRICA [Suspect]
     Indication: BACK PAIN
     Dosage: 25 MG, 1X/DAY (AT NIGHTS)
     Dates: start: 201402
  2. LYRICA [Suspect]
     Indication: FIBROMYALGIA
  3. MORPHINE [Suspect]
     Indication: BACK PAIN
     Dosage: 50 MG, UNK
  4. MORPHINE [Suspect]
     Indication: FIBROMYALGIA

REACTIONS (12)
  - Blindness [Unknown]
  - Asphyxia [Unknown]
  - Dizziness [Unknown]
  - Anxiety [Unknown]
  - Decreased appetite [Unknown]
  - Apathy [Unknown]
  - Somnolence [Unknown]
  - Insomnia [Unknown]
  - Hallucination, visual [Unknown]
  - Swelling face [Unknown]
  - Pain [Unknown]
  - Drug ineffective [Unknown]
